FAERS Safety Report 23538521 (Version 1)
Quarter: 2024Q1

REPORT INFORMATION
  Report Type: Other
  Country: US (occurrence: None)
  Receive Date: 20240219
  Receipt Date: 20240219
  Transmission Date: 20240410
  Serious: Yes (Death, Hospitalization, Other)
  Sender: FDA-Public Use
  Company Number: US-ROCHE-3510475

PATIENT

DRUGS (5)
  1. MOSUNETUZUMAB [Suspect]
     Active Substance: MOSUNETUZUMAB
     Indication: Follicular lymphoma
     Dosage: ON DAY1
     Route: 058
  2. MOSUNETUZUMAB [Suspect]
     Active Substance: MOSUNETUZUMAB
     Dosage: ON DAY8 AND DAY15 OF CYCLE 1, AND 45 MG ON DAY1 OF EACH SUBSEQUENT 21-DAY CYCLE
     Route: 058
  3. DEXAMETHASONE [Concomitant]
     Active Substance: DEXAMETHASONE
     Dosage: FOR 3 DAYS
  4. DIPHENHYDRAMINE [Concomitant]
     Active Substance: DIPHENHYDRAMINE
  5. ACETAMINOPHEN [Concomitant]
     Active Substance: ACETAMINOPHEN

REACTIONS (11)
  - Arrhythmia [Fatal]
  - COVID-19 pneumonia [Fatal]
  - Cytokine release syndrome [Unknown]
  - Neutropenia [Unknown]
  - Infection [Unknown]
  - Injection site reaction [Unknown]
  - Fatigue [Unknown]
  - Dry skin [Unknown]
  - Rash [Unknown]
  - Alanine aminotransferase increased [Unknown]
  - Aspartate aminotransferase increased [Unknown]
